FAERS Safety Report 10018643 (Version 2)
Quarter: 2014Q2

REPORT INFORMATION
  Report Type: Report from Study
  Country: TR (occurrence: TR)
  Receive Date: 20140318
  Receipt Date: 20140604
  Transmission Date: 20141212
  Serious: Yes (Hospitalization)
  Sender: FDA-Public Use
  Company Number: TR-SA-2014SA031483

PATIENT
  Age: 23 Month
  Sex: Male
  Weight: 10 kg

DRUGS (1)
  1. ALEMTUZUMAB [Suspect]
     Indication: HISTIOCYTOSIS
     Route: 065
     Dates: start: 20140206, end: 20140206

REACTIONS (1)
  - Hypersensitivity [Unknown]
